FAERS Safety Report 8004348-3 (Version None)
Quarter: 2011Q4

REPORT INFORMATION
  Report Type: 
  Country: None (occurrence: None)
  Receive Date: 20111223
  Receipt Date: 20111221
  Transmission Date: 20120403
  Serious: No
  Sender: FDA-Public Use
  Company Number: US-BIOGENIDEC-2011BI048286

PATIENT
  Age: 37 Year
  Sex: Female

DRUGS (2)
  1. TYSABRI [Suspect]
     Indication: MULTIPLE SCLEROSIS
     Route: 042
     Dates: start: 20111027
  2. TYSABRI [Suspect]
     Route: 042
     Dates: start: 20080916, end: 20100616

REACTIONS (3)
  - FATIGUE [None]
  - HYPOAESTHESIA [None]
  - STRESS [None]
